FAERS Safety Report 7893126-1 (Version None)
Quarter: 2011Q4

REPORT INFORMATION
  Report Type: 
  Country: None (occurrence: None)
  Receive Date: 20111104
  Receipt Date: 20111027
  Transmission Date: 20120403
  Serious: Yes (Hospitalization, Other)
  Sender: FDA-Public Use
  Company Number: US-US-EMD SERONO, INC.-7067617

PATIENT
  Sex: Male
  Weight: 82 kg

DRUGS (6)
  1. TYLENOL PM [Concomitant]
     Indication: PREMEDICATION
  2. REBIF [Suspect]
     Indication: MULTIPLE SCLEROSIS
     Route: 058
     Dates: start: 20110427, end: 20110511
  3. REBIF [Suspect]
     Route: 058
     Dates: start: 20110525
  4. REBIF [Suspect]
     Route: 058
     Dates: start: 20110706, end: 20111010
  5. REBIF [Suspect]
     Route: 058
     Dates: start: 20110613, end: 20110620
  6. REBIF [Suspect]
     Route: 058
     Dates: start: 20110511, end: 20110525

REACTIONS (7)
  - STREPTOCOCCAL URINARY TRACT INFECTION [None]
  - CALCULUS BLADDER [None]
  - MULTIPLE SCLEROSIS RELAPSE [None]
  - NEUROGENIC BLADDER [None]
  - ANGER [None]
  - MALAISE [None]
  - CYSTITIS [None]
